FAERS Safety Report 14067192 (Version 1)
Quarter: 2017Q4

REPORT INFORMATION
  Report Type: Report from Study
  Country: None (occurrence: CO)
  Receive Date: 20171010
  Receipt Date: 20171010
  Transmission Date: 20180321
  Serious: Yes (Other)
  Sender: FDA-Public Use
  Company Number: CO-ABBVIE-17K-036-2119498-00

PATIENT
  Age: 56 Year
  Sex: Female

DRUGS (2)
  1. HUMIRA [Suspect]
     Active Substance: ADALIMUMAB
     Indication: CROHN^S DISEASE
     Route: 058
     Dates: start: 20090519, end: 20170813
  2. AMOXICILLIN. [Suspect]
     Active Substance: AMOXICILLIN
     Indication: PRODUCT USED FOR UNKNOWN INDICATION
     Route: 065

REACTIONS (4)
  - Tooth extraction [Recovered/Resolved]
  - Toxicity to various agents [Recovering/Resolving]
  - Hypoxia [Recovered/Resolved]
  - Dizziness [Recovering/Resolving]

NARRATIVE: CASE EVENT DATE: 20170927
